FAERS Safety Report 12889095 (Version 1)
Quarter: 2016Q4

REPORT INFORMATION
  Report Type: Spontaneous
  Country: US (occurrence: US)
  Receive Date: 20161027
  Receipt Date: 20161027
  Transmission Date: 20170207
  Serious: Yes (Other)
  Sender: FDA-Public Use
  Company Number: US-PFIZER INC-2016494646

PATIENT
  Age: 62 Year
  Sex: Male

DRUGS (2)
  1. ADENOSINE PHOSPHATE [Suspect]
     Active Substance: ADENOSINE PHOSPHATE
     Indication: FRACTIONAL FLOW RESERVE
     Dosage: 96 UG, UNK (ADMINISTERED AFTER TWO MINUTES)
     Route: 022
  2. ADENOSINE PHOSPHATE [Suspect]
     Active Substance: ADENOSINE PHOSPHATE
     Dosage: 72 UG, UNK (24 ?G/ML OF NORMAL SALINE)
     Route: 022

REACTIONS (1)
  - Ventricular fibrillation [Recovered/Resolved]
